FAERS Safety Report 26215869 (Version 1)
Quarter: 2025Q4

REPORT INFORMATION
  Report Type: Spontaneous
  Country: US (occurrence: US)
  Receive Date: 20251231
  Receipt Date: 20251231
  Transmission Date: 20260118
  Serious: Yes (Other)
  Sender: AMNEAL
  Company Number: US-AMNEAL PHARMACEUTICALS-2025-AMRX-05001

PATIENT
  Age: 43 Year
  Sex: Female

DRUGS (2)
  1. EPHEDRINE SULFATE [Suspect]
     Active Substance: EPHEDRINE SULFATE
     Indication: Influenza like illness
     Dosage: UNK
     Route: 065
  2. HYDROCHLOROTHIAZIDE [Suspect]
     Active Substance: HYDROCHLOROTHIAZIDE
     Indication: Blood potassium abnormal
     Dosage: UNK
     Route: 065

REACTIONS (4)
  - Hypokalaemia [Recovered/Resolved]
  - Ventricular fibrillation [Recovered/Resolved]
  - Cardiac arrest [Recovered/Resolved]
  - Renal failure [Recovered/Resolved]
